FAERS Safety Report 24951989 (Version 1)
Quarter: 2025Q1

REPORT INFORMATION
  Report Type: Spontaneous
  Country: GR (occurrence: GR)
  Receive Date: 20250210
  Receipt Date: 20250210
  Transmission Date: 20250409
  Serious: Yes (Other)
  Sender: MYLAN
  Company Number: None

PATIENT
  Age: 68 Year
  Sex: Female
  Weight: 57 kg

DRUGS (4)
  1. ATORVASTATIN [Suspect]
     Active Substance: ATORVASTATIN
     Indication: Primary hypercholesterolaemia
     Route: 048
     Dates: start: 20141210, end: 20141231
  2. EZETIMIBE [Suspect]
     Active Substance: EZETIMIBE
     Indication: Primary hypercholesterolaemia
     Route: 048
     Dates: start: 20160310, end: 20160331
  3. PITAVASTATIN [Suspect]
     Active Substance: PITAVASTATIN
     Indication: Primary hypercholesterolaemia
     Route: 048
     Dates: start: 20150505, end: 20150531
  4. BISOPROLOL FUMARATE [Concomitant]
     Active Substance: BISOPROLOL FUMARATE
     Route: 048
     Dates: start: 20210611

REACTIONS (3)
  - Vision blurred [Recovered/Resolved]
  - Headache [Recovered/Resolved]
  - Myalgia [Recovered/Resolved]

NARRATIVE: CASE EVENT DATE: 20150101
